FAERS Safety Report 6614083-1 (Version None)
Quarter: 2010Q1

REPORT INFORMATION
  Report Type: 
  Country: None (occurrence: None)
  Receive Date: 20100304
  Receipt Date: 20100223
  Transmission Date: 20100710
  Serious: Yes (Hospitalization)
  Sender: FDA-Public Use
  Company Number: PHHY2010CA11032

PATIENT
  Sex: Male

DRUGS (6)
  1. EXJADE [Suspect]
     Indication: MYELODYSPLASTIC SYNDROME
     Dosage: 1750 MG, QD
     Route: 048
  2. EXJADE [Suspect]
     Dosage: 2000 MG /DAILY
     Route: 048
  3. DILTIAZEM HCL [Concomitant]
     Dosage: 120 MG, QD
     Route: 048
  4. DILTIAZEM HCL [Concomitant]
     Dosage: 240 MG, QD
     Route: 048
  5. FUROSEMIDE [Concomitant]
     Dosage: 20 MG, QD
     Route: 048
  6. FUROSEMIDE [Concomitant]
     Dosage: 40 MG, QD
     Route: 048

REACTIONS (2)
  - DYSPNOEA [None]
  - PAIN IN EXTREMITY [None]
